FAERS Safety Report 8028036-2 (Version None)
Quarter: 2012Q1

REPORT INFORMATION
  Report Type: 
  Country: None (occurrence: None)
  Receive Date: 20120106
  Receipt Date: 20111227
  Transmission Date: 20120608
  Serious: Yes (Death)
  Sender: FDA-Public Use
  Company Number: US-JNJFOC-20111212638

PATIENT
  Age: 63 Year
  Sex: Female

DRUGS (1)
  1. PARACETAMOL/DIPHENHYDRAMINE HCL [Suspect]
     Indication: ILL-DEFINED DISORDER
     Route: 048

REACTIONS (1)
  - TOXICITY TO VARIOUS AGENTS [None]
